FAERS Safety Report 10171768 (Version 1)
Quarter: 2014Q2

REPORT INFORMATION
  Report Type: Spontaneous
  Country: GB (occurrence: GB)
  Receive Date: 20140514
  Receipt Date: 20140514
  Transmission Date: 20141212
  Serious: Yes (Life-Threatening)
  Sender: FDA-Public Use
  Company Number: GB-JNJFOC-20140503362

PATIENT
  Age: 49 Year
  Sex: Male
  Weight: 90 kg

DRUGS (9)
  1. FENTANYL [Suspect]
     Indication: BACK PAIN
     Route: 062
     Dates: start: 20140408
  2. NAPROXEN [Concomitant]
     Route: 065
  3. TRAMADOL HYDROCHLORIDE [Concomitant]
     Route: 065
  4. METFORMIN [Concomitant]
     Route: 065
  5. SODIUM VALPROATE [Concomitant]
     Route: 065
  6. CITALOPRAM [Concomitant]
     Route: 065
  7. ATORVASTATIN [Concomitant]
     Route: 065
  8. ASPIRIN [Concomitant]
     Route: 065
  9. INSULIN HUMAN [Concomitant]
     Route: 065

REACTIONS (4)
  - Overdose [Recovered/Resolved]
  - Cyanosis [Recovered/Resolved]
  - Loss of consciousness [Recovered/Resolved]
  - Medication error [Unknown]
